FAERS Safety Report 19746510 (Version 1)
Quarter: 2021Q3

REPORT INFORMATION
  Report Type: Spontaneous
  Country: US (occurrence: US)
  Receive Date: 20210825
  Receipt Date: 20210825
  Transmission Date: 20211014
  Serious: Yes (Other)
  Sender: FDA-Public Use
  Company Number: US-PFIZER INC-2021691617

PATIENT
  Age: 81 Year
  Sex: Male

DRUGS (5)
  1. PREDNISONE. [Suspect]
     Active Substance: PREDNISONE
     Dosage: 60 MG, 2X/DAY
  2. VINCRISTINE SULFATE. [Suspect]
     Active Substance: VINCRISTINE SULFATE
     Indication: PROLYMPHOCYTIC LEUKAEMIA
     Dosage: 1 MG ON DAY 1
     Route: 042
  3. VINCRISTINE SULFATE. [Suspect]
     Active Substance: VINCRISTINE SULFATE
     Dosage: 2 MG
     Route: 042
  4. PREDNISONE. [Suspect]
     Active Substance: PREDNISONE
     Indication: PROLYMPHOCYTIC LEUKAEMIA
     Dosage: 30 MG, 2X/DAY FOR 5 DAYS
     Route: 048
  5. CYCLOPHOSPHAMIDE. [Concomitant]
     Active Substance: CYCLOPHOSPHAMIDE
     Indication: PROLYMPHOCYTIC LEUKAEMIA
     Dosage: 200 MG, DAILY (FOR 5 DAYS)
     Route: 042

REACTIONS (1)
  - Tumour lysis syndrome [Unknown]
